FAERS Safety Report 20057890 (Version 3)
Quarter: 2022Q1

REPORT INFORMATION
  Report Type: Spontaneous
  Country: US (occurrence: US)
  Receive Date: 20211111
  Receipt Date: 20220216
  Transmission Date: 20220424
  Serious: Yes (Death, Other)
  Sender: FDA-Public Use
  Company Number: US-ELI_LILLY_AND_COMPANY-US202111004322

PATIENT
  Age: 88 Year
  Sex: Female

DRUGS (2)
  1. TALTZ [Suspect]
     Active Substance: IXEKIZUMAB
     Indication: Psoriasis
     Dosage: 160 MG, SINGLE, LOADING DOSE
     Route: 058
     Dates: start: 20210830
  2. TALTZ [Suspect]
     Active Substance: IXEKIZUMAB
     Dosage: 80 MG, 2/M (EVERY TWO WEEKS)
     Route: 058
     Dates: start: 20210830

REACTIONS (6)
  - Cerebrovascular accident [Fatal]
  - Encephalopathy [Fatal]
  - Cardiac failure [Fatal]
  - Fall [Unknown]
  - Hip fracture [Unknown]
  - Product dose omission issue [Unknown]

NARRATIVE: CASE EVENT DATE: 20210927
